FAERS Safety Report 4408371-7 (Version None)
Quarter: 2004Q3

REPORT INFORMATION
  Report Type: 
  Country: None (occurrence: None)
  Receive Date: 20040722
  Receipt Date: 20040712
  Transmission Date: 20050211
  Serious: Yes (Other)
  Sender: FDA-Public Use
  Company Number: 200419130BWH

PATIENT
  Sex: Male

DRUGS (1)
  1. LEVITRA [Suspect]
     Indication: ERECTILE DYSFUNCTION
     Dosage: 10 MG, TOTAL DAILY, ORAL
     Route: 048

REACTIONS (4)
  - CHILLS [None]
  - PROSTATE INFECTION [None]
  - PROSTATIC SPECIFIC ANTIGEN INCREASED [None]
  - PYREXIA [None]
